FAERS Safety Report 9908414 (Version 1)
Quarter: 2014Q1

REPORT INFORMATION
  Report Type: Spontaneous
  Country: US (occurrence: None)
  Receive Date: 20140214
  Receipt Date: 20140214
  Transmission Date: 20141002
  Serious: Yes (Hospitalization)
  Sender: FDA-Public Use
  Company Number: None

PATIENT
  Age: 34 None
  Sex: Male
  Weight: 59 kg

DRUGS (1)
  1. GOODY^S POWDER [Suspect]
     Indication: ABDOMINAL PAIN
     Dosage: CHRONIC, 2-3 POWDERS (500 MG ASPIRIN ECH) DAILY PRN PO?
     Route: 048

REACTIONS (2)
  - Gastritis [None]
  - Inappropriate schedule of drug administration [None]
